FAERS Safety Report 10223291 (Version 1)
Quarter: 2014Q2

REPORT INFORMATION
  Report Type: Spontaneous
  Country: US (occurrence: None)
  Receive Date: 20140606
  Receipt Date: 20140606
  Transmission Date: 20141212
  Serious: Yes (Life-Threatening)
  Sender: FDA-Public Use
  Company Number: None

PATIENT
  Age: 69 Year
  Sex: Female
  Weight: 80.29 kg

DRUGS (9)
  1. METHOTREXATE [Suspect]
     Indication: RHEUMATOID ARTHRITIS
     Dosage: 1CC SQ WEEKLY, WEEKLY, SUBCUTANEOUS?
     Route: 058
     Dates: start: 20140526, end: 20140602
  2. REMICADE [Concomitant]
  3. METHOTREXATE [Concomitant]
  4. PREDNISONE [Concomitant]
  5. SYNTHROID [Concomitant]
  6. FOLIC ACID [Concomitant]
  7. NEURONTIN [Concomitant]
  8. OMEPRAZOLE [Concomitant]
  9. ALENDRONATE [Concomitant]

REACTIONS (5)
  - Erythema [None]
  - Back pain [None]
  - Dyspnoea [None]
  - Hyperhidrosis [None]
  - Throat tightness [None]
